FAERS Safety Report 6533489-2 (Version None)
Quarter: 2010Q1

REPORT INFORMATION
  Report Type: 
  Country: None (occurrence: None)
  Receive Date: 20100111
  Receipt Date: 20100105
  Transmission Date: 20100710
  Serious: Yes (Other)
  Sender: FDA-Public Use
  Company Number: US-BRISTOL-MYERS SQUIBB COMPANY-14926091

PATIENT
  Age: 1 Decade
  Sex: Male

DRUGS (1)
  1. ABILIFY [Suspect]
     Dosage: DOSE REDUCED

REACTIONS (2)
  - AKATHISIA [None]
  - FACIAL PALSY [None]
